FAERS Safety Report 9171730 (Version 1)
Quarter: 2013Q1

REPORT INFORMATION
  Report Type: Spontaneous
  Country: DE (occurrence: DE)
  Receive Date: 20130319
  Receipt Date: 20130319
  Transmission Date: 20140127
  Serious: Yes (Hospitalization)
  Sender: FDA-Public Use
  Company Number: GXKR2013DE001169

PATIENT
  Sex: 0

DRUGS (9)
  1. ACETYLSALICYLIC ACID [Suspect]
     Indication: STENT PLACEMENT
     Dosage: 100 MG/DAY
     Route: 048
  2. EFIENT [Suspect]
     Indication: STENT PLACEMENT
     Dosage: 1 DF/DAY
     Route: 048
     Dates: start: 201111, end: 201210
  3. HYDROCHLOROTHIAZID [Concomitant]
     Dosage: 12.5 MG/DAY
     Route: 048
  4. BISOPROLOL AL [Concomitant]
     Dosage: 1 DF/DAY
     Route: 048
  5. RAMIPRIL AL [Concomitant]
     Dosage: 2 DF/DAY
     Route: 048
  6. SIMVASTATIN AL [Concomitant]
     Dosage: 1 DF/DAY
     Route: 048
  7. METFORMIN HYDROCHLORIDE [Concomitant]
     Dosage: 1000 MG/DAY
     Route: 048
  8. L-THYROX JOD HEXAL [Concomitant]
     Dosage: 1 DF/DAY
     Route: 048
  9. IBUPROFEN [Concomitant]
     Indication: PAIN
     Dosage: 1800 MG, PRN
     Route: 048

REACTIONS (8)
  - Gastric ulcer [Recovered/Resolved]
  - Haemoglobin decreased [Recovered/Resolved]
  - Hypochromic anaemia [Recovered/Resolved]
  - Microcytic anaemia [Recovered/Resolved]
  - Pallor [Recovered/Resolved]
  - Dyspnoea [Recovered/Resolved]
  - Asthenia [Recovered/Resolved]
  - Laboratory test abnormal [Recovered/Resolved]
